FAERS Safety Report 9214233 (Version 2)
Quarter: 2013Q2

REPORT INFORMATION
  Report Type: Spontaneous
  Country: US (occurrence: None)
  Receive Date: 20120827
  Receipt Date: 20121123
  Transmission Date: 20140414
  Serious: Yes (Other)
  Sender: FDA-Public Use
  Company Number: 355058

PATIENT
  Sex: Female

DRUGS (3)
  1. VICTOZA [Suspect]
     Indication: PRODUCT USED FOR UNKNOWN INDICATION
     Route: 058
  2. METFORMIN (METFORMIN) [Concomitant]
  3. GLYBURIDE (GLIBENCLAMIDE) [Concomitant]

REACTIONS (5)
  - Weight decreased [None]
  - Food craving [None]
  - Decreased appetite [None]
  - Nausea [None]
  - Blood glucose decreased [None]
